FAERS Safety Report 16753706 (Version 2)
Quarter: 2019Q3

REPORT INFORMATION
  Report Type: Spontaneous
  Country: RU (occurrence: RU)
  Receive Date: 20190829
  Receipt Date: 20190909
  Transmission Date: 20191005
  Serious: Yes (Life-Threatening)
  Sender: FDA-Public Use
  Company Number: RU-EMD SERONO-9112999

PATIENT
  Age: 9 Year
  Sex: Female

DRUGS (1)
  1. REBIF [Suspect]
     Active Substance: INTERFERON BETA-1A
     Indication: MULTIPLE SCLEROSIS
     Route: 058

REACTIONS (6)
  - Periorbital oedema [Recovered/Resolved]
  - Type I hypersensitivity [Recovered/Resolved]
  - Hypersensitivity [Recovered/Resolved]
  - Pruritus [Recovered/Resolved]
  - Unevaluable event [Recovered/Resolved]
  - Hyperaemia [Recovered/Resolved]
